FAERS Safety Report 20664063 (Version 1)
Quarter: 2022Q2

REPORT INFORMATION
  Report Type: Spontaneous
  Country: US (occurrence: None)
  Receive Date: 20220401
  Receipt Date: 20220401
  Transmission Date: 20220721
  Serious: Yes (unspecified)
  Sender: FDA-Public Use
  Company Number: None

PATIENT
  Age: 67 Year
  Sex: Female
  Weight: 73.35 kg

DRUGS (1)
  1. LANTUS [Suspect]
     Active Substance: INSULIN GLARGINE
     Indication: Diabetes mellitus
     Dosage: OTHER STRENGTH : 20;?FREQUENCY : AT BEDTIME;?
     Route: 058

REACTIONS (2)
  - Urinary tract infection [None]
  - Muscle spasms [None]

NARRATIVE: CASE EVENT DATE: 20220329
